FAERS Safety Report 4410621-8 (Version None)
Quarter: 2004Q3

REPORT INFORMATION
  Report Type: 
  Country: None (occurrence: None)
  Receive Date: 20040729
  Receipt Date: 20040610
  Transmission Date: 20050211
  Serious: No
  Sender: FDA-Public Use
  Company Number: US-BRISTOL-MYERS SQUIBB COMPANY-12611653

PATIENT
  Age: 65 Year
  Sex: Female
  Weight: 93 kg

DRUGS (5)
  1. METAGLIP [Suspect]
     Indication: DIABETES MELLITUS
     Dosage: DOSAGE = 2.5 / 500 MG TWICE DAILY
     Route: 048
  2. METOCLOPRAMIDE HCL [Concomitant]
  3. LISINOPRIL [Concomitant]
  4. LEVOXYL [Concomitant]
  5. PREMARIN [Concomitant]

REACTIONS (2)
  - DRUG INEFFECTIVE [None]
  - RENAL PAIN [None]
